FAERS Safety Report 9507650 (Version 1)
Quarter: 2013Q1

REPORT INFORMATION
  Report Type: Spontaneous
  Country: US (occurrence: None)
  Receive Date: 20130305
  Receipt Date: 20130305
  Transmission Date: 20140127
  Serious: Yes (Other)
  Sender: FDA-Public Use
  Company Number: 163-21880-11114057

PATIENT
  Age: 65 Year
  Sex: Male

DRUGS (2)
  1. REVLIMID [Suspect]
     Indication: MYELODYSPLASTIC SYNDROME
     Dosage: 10 MG, , 1 IN 1 D, PO?
     Route: 048
     Dates: start: 20120602
  2. ERY-TAB (ERYTHROMYCIN) [Concomitant]

REACTIONS (4)
  - Nephrolithiasis [None]
  - Diarrhoea [None]
  - Pneumonia [None]
  - Weight decreased [None]
